FAERS Safety Report 16485475 (Version 2)
Quarter: 2019Q4

REPORT INFORMATION
  Report Type: Spontaneous
  Country: US (occurrence: US)
  Receive Date: 20190627
  Receipt Date: 20191031
  Transmission Date: 20200122
  Serious: No
  Sender: FDA-Public Use
  Company Number: US-LEO PHARMA-319466

PATIENT
  Age: 56 Year
  Sex: Male

DRUGS (2)
  1. PICATO [Suspect]
     Active Substance: INGENOL MEBUTATE
     Indication: ACTINIC KERATOSIS
     Route: 061
     Dates: start: 20190501, end: 20190503
  2. PICATO [Suspect]
     Active Substance: INGENOL MEBUTATE
     Dosage: USED 3 TIMES IN THE PAST MOST RECENTLY IN EARLY MAY
     Dates: start: 2016

REACTIONS (2)
  - Drug ineffective [Unknown]
  - Inappropriate schedule of product administration [Unknown]
